FAERS Safety Report 25435165 (Version 1)
Quarter: 2025Q2

REPORT INFORMATION
  Report Type: Report from Study
  Country: US (occurrence: US)
  Receive Date: 20250613
  Receipt Date: 20250613
  Transmission Date: 20250717
  Serious: Yes (Death)
  Sender: OTSUKA
  Company Number: US-MMM-Otsuka-PXRV2WIK

PATIENT
  Sex: Male

DRUGS (2)
  1. TOLVAPTAN [Suspect]
     Active Substance: TOLVAPTAN
     Indication: Congenital cystic kidney disease
     Dosage: 60 MG, QD (UPON WAKING EVERY MORNING)
     Route: 048
     Dates: start: 20240411, end: 202506
  2. TOLVAPTAN [Suspect]
     Active Substance: TOLVAPTAN
     Dosage: 30 MG, QD (8 H LATER EVERY EVENING)
     Route: 048
     Dates: start: 20240411, end: 202506

REACTIONS (1)
  - Death [Fatal]
